FAERS Safety Report 10429255 (Version 1)
Quarter: 2014Q3

REPORT INFORMATION
  Report Type: Spontaneous
  Country: JP (occurrence: JP)
  Receive Date: 20140904
  Receipt Date: 20140904
  Transmission Date: 20150326
  Serious: Yes (Hospitalization)
  Sender: FDA-Public Use
  Company Number: JP-ACCORD-025735

PATIENT
  Age: 51 Year
  Sex: Male

DRUGS (4)
  1. FLUOROURACIL. [Suspect]
     Active Substance: FLUOROURACIL
     Indication: RECTAL CANCER RECURRENT
     Dosage: TWENTY -TWO COURSES OF FOLFOX4 AND 39 COURSES OF 5-FU.
  2. OXALIPLATIN. [Suspect]
     Active Substance: OXALIPLATIN
     Indication: RECTAL CANCER RECURRENT
  3. FOLINIC ACID [Suspect]
     Active Substance: LEUCOVORIN
     Indication: RECTAL CANCER RECURRENT
     Dosage: TWENTY -TWO COURSES  OF THE FOLINIC ACID AND 39 COURSES OF LEUCOVORIN.
  4. BEVACIZUMAB [Suspect]
     Active Substance: BEVACIZUMAB
     Indication: RECTAL CANCER RECURRENT
     Dosage: TWENTY -TWO COURSES OF BEVACIZUMAB(BEV)REGIMEN AND 39 COURSES OF BEV.

REACTIONS (3)
  - Portal hypertension [Unknown]
  - Splenomegaly [Unknown]
  - Gastric varices haemorrhage [Recovered/Resolved]
